FAERS Safety Report 21981949 (Version 2)
Quarter: 2023Q2

REPORT INFORMATION
  Report Type: Report from Study
  Country: US (occurrence: None)
  Receive Date: 20230212
  Receipt Date: 20230403
  Transmission Date: 20230722
  Serious: Yes (Other)
  Sender: FDA-Public Use
  Company Number: US-Merck Healthcare KGaA-9382871

PATIENT
  Age: 69 Year
  Sex: Female

DRUGS (1)
  1. REBIF [Suspect]
     Active Substance: INTERFERON BETA-1A
     Indication: Multiple sclerosis
     Dosage: REBIF PREFILLED SYRINGE
     Route: 058
     Dates: start: 20180523

REACTIONS (5)
  - Blood pressure increased [Unknown]
  - Hypotension [Unknown]
  - Headache [Unknown]
  - Gait disturbance [Unknown]
  - Stress [Unknown]

NARRATIVE: CASE EVENT DATE: 20221201
